FAERS Safety Report 8594606-6 (Version None)
Quarter: 2012Q3

REPORT INFORMATION
  Report Type: 
  Country: None (occurrence: None)
  Receive Date: 20120815
  Receipt Date: 20120809
  Transmission Date: 20120928
  Serious: No
  Sender: FDA-Public Use
  Company Number: US-PFIZER INC-2012194753

PATIENT
  Age: 11 Year
  Sex: Female
  Weight: 54.422 kg

DRUGS (9)
  1. GENOTROPIN [Suspect]
     Indication: OVERWEIGHT
  2. LORATADINE [Concomitant]
     Indication: ASTHMA
     Dosage: 10 MG, UNK
  3. GENOTROPIN [Suspect]
     Indication: BODY HEIGHT BELOW NORMAL
     Dosage: 2.2 ML, DAILY
     Dates: start: 20120714
  4. GENOTROPIN [Suspect]
     Indication: HYPOTHALAMO-PITUITARY DISORDER
  5. FLOVENT [Concomitant]
     Indication: ASTHMA
     Dosage: UNK, 2 PUFFS 2X/DAY
  6. SINGULAIR [Concomitant]
     Indication: ASTHMA
     Dosage: 5 MG, DAILY
  7. AZITHROMYCIN [Concomitant]
     Indication: ASTHMA
     Dosage: 250 MG, 2X/WEEK (WEDNESDAY AND FRIDAY)
  8. PULMOZYME [Concomitant]
     Indication: ASTHMA
     Dosage: UNK, DAILY
  9. FLUTICASONE PROPIONATE [Concomitant]
     Indication: ASTHMA
     Dosage: UNK, 2 PUFFS 2X/DAY

REACTIONS (1)
  - HEADACHE [None]
